FAERS Safety Report 17201168 (Version 1)
Quarter: 2019Q4

REPORT INFORMATION
  Report Type: Spontaneous
  Country: US (occurrence: US)
  Receive Date: 20191203
  Receipt Date: 20191203
  Transmission Date: 20200122
  Serious: Yes (Life-Threatening)
  Sender: FDA-Public Use
  Company Number: None

PATIENT
  Age: 80 Year
  Sex: Male
  Weight: 116.12 kg

DRUGS (2)
  1. HEMP CLASSIC CBD [Suspect]
     Active Substance: CANNABIDIOL\CANNABIS SATIVA SEED OIL
     Indication: SLEEP DISORDER
     Dates: start: 20190518, end: 20190620
  2. WARFARIN [Suspect]
     Active Substance: WARFARIN

REACTIONS (2)
  - Vessel perforation [None]
  - Drug interaction [None]

NARRATIVE: CASE EVENT DATE: 20190617
